FAERS Safety Report 9693225 (Version 2)
Quarter: 2014Q1

REPORT INFORMATION
  Report Type: Report from Study
  Country: FR (occurrence: FR)
  Receive Date: 20131118
  Receipt Date: 20140313
  Transmission Date: 20141002
  Serious: Yes (Hospitalization)
  Sender: FDA-Public Use
  Company Number: FR-MERCK-1311FRA004500

PATIENT
  Age: 78 Year
  Sex: Male
  Weight: 65 kg

DRUGS (12)
  1. VORINOSTAT [Suspect]
     Indication: ACUTE MYELOID LEUKAEMIA
     Dosage: 600 MG, QD
     Route: 048
     Dates: start: 20130829, end: 20130904
  2. VORINOSTAT [Suspect]
     Dosage: 600 MG, QD
     Route: 048
     Dates: start: 20130925, end: 20131001
  3. AZACITIDINE [Suspect]
     Indication: ACUTE MYELOID LEUKAEMIA
     Dosage: 140 MG, QD
     Route: 058
     Dates: start: 20130827, end: 20130904
  4. AZACITIDINE [Suspect]
     Dosage: 140 MG, QD
     Route: 058
     Dates: start: 20130923, end: 20130929
  5. XELEVIA [Concomitant]
     Indication: DIABETES MELLITUS
     Dosage: 1 DF, QD
     Route: 048
  6. TAHOR [Concomitant]
     Indication: HYPERCHOLESTEROLAEMIA
     Dosage: 10 MG, QD
     Route: 048
  7. METFORMIN [Concomitant]
     Indication: DIABETES MELLITUS
     Dosage: 1000 MG, QD
     Route: 048
  8. LASILIX [Concomitant]
     Dosage: 40 MG, QD
  9. LOXEN [Concomitant]
     Indication: HYPERTENSION
     Dosage: 50 MG, QD
     Route: 048
  10. LOVENOX [Concomitant]
     Indication: THROMBOSIS PROPHYLAXIS
     Dosage: 0.4 ML, PRN
     Dates: start: 20130923
  11. CORDARONE [Concomitant]
     Indication: CORONARY ARTERY DISEASE
     Dosage: 200 MG, QD
  12. PERMIXON [Concomitant]
     Indication: MICTURITION DISORDER
     Dosage: 160 MG, QD

REACTIONS (1)
  - Pancytopenia [Recovered/Resolved]
